FAERS Safety Report 4526363-4 (Version None)
Quarter: 2004Q4

REPORT INFORMATION
  Report Type: 
  Country: None (occurrence: None)
  Receive Date: 20041213
  Receipt Date: 20030716
  Transmission Date: 20050328
  Serious: Yes (Disabling)
  Sender: FDA-Public Use
  Company Number: 5869

PATIENT
  Age: 48 Year
  Sex: Female

DRUGS (3)
  1. FLUOROURACIL [Suspect]
     Indication: BREAST CANCER
  2. METHOTREXATE [Suspect]
     Indication: BREAST CANCER
     Dosage: IV
     Route: 042
     Dates: start: 19940101
  3. CYCLOPHOSPHAMIDE [Suspect]
     Indication: BREAST CANCER

REACTIONS (5)
  - DACRYOCANALICULITIS [None]
  - DACRYOSTENOSIS ACQUIRED [None]
  - FIBROSIS [None]
  - GRANULOMA [None]
  - POST PROCEDURAL COMPLICATION [None]
